FAERS Safety Report 13438689 (Version 1)
Quarter: 2017Q2

REPORT INFORMATION
  Report Type: Report from Study
  Country: DE (occurrence: DE)
  Receive Date: 20170413
  Receipt Date: 20170413
  Transmission Date: 20170830
  Serious: Yes (Death, Hospitalization)
  Sender: FDA-Public Use
  Company Number: DE-BAYER-2017-065234

PATIENT

DRUGS (1)
  1. ASPIRIN. [Suspect]
     Active Substance: ASPIRIN

REACTIONS (4)
  - Shock haemorrhagic [None]
  - Vascular access site haemorrhage [None]
  - Bleeding time prolonged [None]
  - Disseminated intravascular coagulation [Fatal]
